FAERS Safety Report 8581907-0 (Version None)
Quarter: 2012Q3

REPORT INFORMATION
  Report Type: 
  Country: None (occurrence: None)
  Receive Date: 20120801
  Receipt Date: 20120801
  Transmission Date: 20120928
  Serious: Yes (Other)
  Sender: FDA-Public Use
  Company Number: None

PATIENT
  Sex: Female

DRUGS (1)
  1. INFED [Suspect]
     Dosage: 1200 MG, X1, IV
     Route: 042

REACTIONS (3)
  - THROAT IRRITATION [None]
  - ERYTHEMA [None]
  - PRURITUS [None]
